FAERS Safety Report 8879773 (Version 5)
Quarter: 2013Q2

REPORT INFORMATION
  Report Type: Spontaneous
  Country: US (occurrence: US)
  Receive Date: 20121031
  Receipt Date: 20130513
  Transmission Date: 20140414
  Serious: Yes (Other)
  Sender: FDA-Public Use
  Company Number: US-US-EMD SERONO, INC.-7170606

PATIENT
  Age: 53 Year
  Sex: Female
  Weight: 72 kg

DRUGS (10)
  1. REBIF [Suspect]
     Indication: MULTIPLE SCLEROSIS
     Route: 058
     Dates: start: 20030908, end: 20121010
  2. REBIF [Suspect]
     Route: 058
     Dates: start: 20121203
  3. ASPIRIN                            /00002701/ [Concomitant]
     Indication: PRODUCT USED FOR UNKNOWN INDICATION
     Route: 048
  4. ATENOLOL [Concomitant]
     Indication: PRODUCT USED FOR UNKNOWN INDICATION
     Route: 048
     Dates: start: 20120816
  5. GAMMA-LINOLENIC ACID [Concomitant]
     Indication: PRODUCT USED FOR UNKNOWN INDICATION
     Route: 048
     Dates: start: 20100316
  6. LIPITOR [Concomitant]
     Indication: PRODUCT USED FOR UNKNOWN INDICATION
     Route: 048
     Dates: start: 20120816
  7. MAXALT                             /01406501/ [Concomitant]
     Indication: HEADACHE
     Route: 048
     Dates: start: 20120319
  8. OMEGA 3 [Concomitant]
     Indication: PRODUCT USED FOR UNKNOWN INDICATION
     Dates: start: 20120918
  9. VITAMIN D /00107901/ [Concomitant]
     Indication: PRODUCT USED FOR UNKNOWN INDICATION
     Route: 048
     Dates: start: 20120319
  10. ZOVIRAX                            /00587301/ [Concomitant]
     Indication: PRODUCT USED FOR UNKNOWN INDICATION
     Route: 061
     Dates: start: 20110517

REACTIONS (23)
  - Idiopathic thrombocytopenic purpura [Recovered/Resolved]
  - Adnexa uteri mass [Unknown]
  - Goitre [Unknown]
  - Mitral valve prolapse [Unknown]
  - Ventricular extrasystoles [Unknown]
  - Vasculitis [Unknown]
  - Anxiety [Unknown]
  - Aphthous stomatitis [Unknown]
  - Migraine [Unknown]
  - Hypercalcaemia [Unknown]
  - Hyperlipidaemia [Unknown]
  - Essential hypertension [Unknown]
  - Osteoporosis [Unknown]
  - Vitamin D deficiency [Unknown]
  - Amnesia [Not Recovered/Not Resolved]
  - Oral mucosal blistering [Unknown]
  - Asthenia [Recovering/Resolving]
  - Drug hypersensitivity [Unknown]
  - Alopecia [Not Recovered/Not Resolved]
  - Influenza like illness [Not Recovered/Not Resolved]
  - Injection site bruising [Not Recovered/Not Resolved]
  - Injection site erythema [Not Recovered/Not Resolved]
  - Myalgia [Unknown]
